FAERS Safety Report 5338742-6 (Version None)
Quarter: 2007Q2

REPORT INFORMATION
  Report Type: 
  Country: None (occurrence: None)
  Receive Date: 20070322
  Receipt Date: 20060509
  Transmission Date: 20071010
  Serious: Yes (Hospitalization)
  Sender: FDA-Public Use
  Company Number: 200611316BCC

PATIENT
  Age: 67 Year
  Sex: Male
  Weight: 102.0593 kg

DRUGS (7)
  1. ALEVE (CAPLET) [Suspect]
     Indication: ARTHRITIS
     Dosage: 220 MG, BID, ORAL
     Route: 048
     Dates: start: 20050101
  2. ASPIRIN [Concomitant]
  3. NORVASC [Concomitant]
  4. CYMBALTA [Concomitant]
  5. GOOD IRON [Concomitant]
  6. FLOMAX [Concomitant]
  7. ASCORBIC ACID [Concomitant]

REACTIONS (2)
  - DIZZINESS [None]
  - ULCER HAEMORRHAGE [None]
